FAERS Safety Report 6633251-6 (Version None)
Quarter: 2010Q1

REPORT INFORMATION
  Report Type: 
  Country: None (occurrence: None)
  Receive Date: 20100312
  Receipt Date: 20100308
  Transmission Date: 20100710
  Serious: Yes (Hospitalization)
  Sender: FDA-Public Use
  Company Number: FR-SANOFI-AVENTIS-2010SA013138

PATIENT
  Age: 90 Year
  Sex: Male

DRUGS (13)
  1. PLAVIX [Suspect]
     Indication: MYOCARDIAL INFARCTION
     Route: 048
     Dates: start: 20100115, end: 20100124
  2. TAHOR [Suspect]
     Indication: MYOCARDIAL INFARCTION
     Route: 048
     Dates: start: 20100115, end: 20100125
  3. MOPRAL [Suspect]
     Route: 048
     Dates: start: 20100115, end: 20100125
  4. KARDEGIC [Concomitant]
     Indication: DRUG USE FOR UNKNOWN INDICATION
     Route: 048
     Dates: end: 20100115
  5. KARDEGIC [Concomitant]
     Route: 048
     Dates: start: 20100115
  6. TEMESTA [Concomitant]
     Indication: DRUG USE FOR UNKNOWN INDICATION
     Route: 048
  7. AVLOCARDYL [Concomitant]
     Indication: DRUG USE FOR UNKNOWN INDICATION
     Route: 048
     Dates: end: 20100115
  8. ESOMEPRAZOLE [Concomitant]
     Indication: DRUG USE FOR UNKNOWN INDICATION
     Dates: end: 20100115
  9. LOXEN [Concomitant]
     Indication: DRUG USE FOR UNKNOWN INDICATION
     Dates: end: 20100115
  10. TENORMIN [Concomitant]
     Indication: DRUG USE FOR UNKNOWN INDICATION
     Route: 048
     Dates: start: 20100115
  11. TRIATEC [Concomitant]
     Indication: DRUG USE FOR UNKNOWN INDICATION
     Route: 048
     Dates: start: 20100115
  12. LASILIX [Concomitant]
     Indication: DRUG USE FOR UNKNOWN INDICATION
     Route: 048
     Dates: start: 20100115, end: 20100125
  13. LASILIX [Concomitant]
     Route: 048
     Dates: start: 20100126

REACTIONS (2)
  - CHOLESTASIS [None]
  - CYTOLYTIC HEPATITIS [None]
